FAERS Safety Report 6274863-1 (Version None)
Quarter: 2009Q3

REPORT INFORMATION
  Report Type: 
  Country: None (occurrence: None)
  Receive Date: 20090721
  Receipt Date: 20090714
  Transmission Date: 20100115
  Serious: Yes (Other)
  Sender: FDA-Public Use
  Company Number: JP-JNJFOC-20090705076

PATIENT

DRUGS (2)
  1. DUROTEP MT PATCH [Suspect]
     Route: 062
  2. DUROTEP MT PATCH [Suspect]
     Indication: CANCER PAIN
     Route: 062

REACTIONS (3)
  - ALTERED STATE OF CONSCIOUSNESS [None]
  - RESPIRATORY DEPRESSION [None]
  - URINE OUTPUT DECREASED [None]
